FAERS Safety Report 23973808 (Version 1)
Quarter: 2024Q2

REPORT INFORMATION
  Report Type: Spontaneous
  Country: FR (occurrence: FR)
  Receive Date: 20240613
  Receipt Date: 20240613
  Transmission Date: 20240715
  Serious: Yes (Other)
  Sender: FDA-Public Use
  Company Number: None

PATIENT
  Age: 55 Year
  Sex: Male
  Weight: 89 kg

DRUGS (7)
  1. ETOPOSIDE [Suspect]
     Active Substance: ETOPOSIDE
     Indication: Acute lymphocytic leukaemia
     Dosage: TIME INTERVAL: CYCLICAL: 3 INJ: 15.16 AND 17.04
     Route: 042
     Dates: start: 20240415, end: 20240417
  2. ASPARAGINASE [Suspect]
     Active Substance: ASPARAGINASE
     Indication: Acute lymphocytic leukaemia
     Dosage: TIME INTERVAL: CYCLICAL: 2 INJECTIONS: 19 AND 21/04
     Route: 042
     Dates: start: 20240419, end: 20240421
  3. MEROPENEM [Suspect]
     Active Substance: MEROPENEM
     Indication: Sepsis
     Dosage: MEROPENEM ANHYDRE
     Route: 042
     Dates: start: 20240423, end: 20240502
  4. MITOXANTRONE [Suspect]
     Active Substance: MITOXANTRONE HYDROCHLORIDE
     Indication: Acute lymphocytic leukaemia
     Dosage: TIME INTERVAL: CYCLICAL: 8MG/M2/INJECTION. 2 INJECTIONS (15 AND 16/04); MITOXANTRONE BASE
     Route: 042
     Dates: start: 20240415, end: 20240416
  5. CYTARABINE [Suspect]
     Active Substance: CYTARABINE
     Indication: Acute lymphocytic leukaemia
     Dosage: TIME INTERVAL: CYCLICAL: 2 INJECTIONS 13 AND 14/04
     Route: 042
     Dates: start: 20240413, end: 20240414
  6. CYTARABINE [Suspect]
     Active Substance: CYTARABINE
     Indication: Acute lymphocytic leukaemia
     Dosage: TIME INTERVAL: CYCLICAL: 40 MG/INJECTIONS (3 INJECTIONS : 09/04, 12/04, 18/04)
     Route: 037
     Dates: start: 20240409, end: 20240418
  7. METHOTREXATE [Suspect]
     Active Substance: METHOTREXATE
     Indication: Acute lymphocytic leukaemia
     Dosage: TIME INTERVAL: CYCLICAL: 3 INJECTIONS : 09/04. 12/04. 18/04
     Route: 037
     Dates: start: 20240409, end: 20240418

REACTIONS (3)
  - Hyperbilirubinaemia [Recovering/Resolving]
  - Cholestatic liver injury [Recovering/Resolving]
  - Jaundice [Recovering/Resolving]

NARRATIVE: CASE EVENT DATE: 20240415
